FAERS Safety Report 16347083 (Version 1)
Quarter: 2019Q2

REPORT INFORMATION
  Report Type: Spontaneous
  Country: US (occurrence: US)
  Receive Date: 20190523
  Receipt Date: 20190523
  Transmission Date: 20190711
  Serious: No
  Sender: FDA-Public Use
  Company Number: US-TARO-2018TAR00506

PATIENT
  Age: 3 Year
  Sex: Female

DRUGS (1)
  1. FEVERALL INFANTS [Suspect]
     Active Substance: ACETAMINOPHEN
     Indication: PYREXIA
     Dosage: UNK
     Route: 054
     Dates: start: 20180701

REACTIONS (6)
  - Dysuria [Unknown]
  - Proctalgia [Unknown]
  - Abnormal faeces [Unknown]
  - Dyschezia [Unknown]
  - Anorectal discomfort [Unknown]
  - Crying [Unknown]

NARRATIVE: CASE EVENT DATE: 20180702
